FAERS Safety Report 21349795 (Version 2)
Quarter: 2022Q4

REPORT INFORMATION
  Report Type: Spontaneous
  Country: DE (occurrence: DE)
  Receive Date: 20220919
  Receipt Date: 20221002
  Transmission Date: 20230113
  Serious: Yes (Death, Other)
  Sender: FDA-Public Use
  Company Number: DE-TEVA-2022-DE-2073408

PATIENT
  Age: 78 Year
  Sex: Male

DRUGS (8)
  1. AMIODARONE [Suspect]
     Active Substance: AMIODARONE
     Indication: Product used for unknown indication
     Dosage: RECEIVED ONLY A FEW DROPS OF INJECTION SOLUTION, (TWICE IN ONE HOUR).
     Route: 065
     Dates: start: 202204, end: 2022
  2. FUROSEMIDE [Concomitant]
     Active Substance: FUROSEMIDE
     Indication: Product used for unknown indication
     Dates: start: 202204, end: 2022
  3. Jonosteril [Concomitant]
     Indication: Product used for unknown indication
     Dates: start: 202204, end: 2022
  4. ALTEPLASE [Concomitant]
     Active Substance: ALTEPLASE
     Indication: Product used for unknown indication
     Dates: start: 202204, end: 2022
  5. ENOXAPARIN [Concomitant]
     Active Substance: ENOXAPARIN
     Indication: Product used for unknown indication
     Route: 058
     Dates: start: 202204, end: 2022
  6. CANDESARTAN [Concomitant]
     Active Substance: CANDESARTAN
     Indication: Product used for unknown indication
     Dates: start: 202204, end: 2022
  7. METOPROLOL [Concomitant]
     Active Substance: METOPROLOL
     Indication: Product used for unknown indication
     Dates: start: 202204, end: 2022
  8. Metoproloperfusor [Concomitant]
     Indication: Product used for unknown indication
     Dosage: PERFUSOR IS A SYRINGE INFUSION PUMP

REACTIONS (15)
  - Circulatory collapse [Fatal]
  - Cardiac arrest [Fatal]
  - Malaise [Fatal]
  - Nausea [Fatal]
  - Hyperhidrosis [Fatal]
  - Dizziness [Fatal]
  - Blood pressure decreased [Fatal]
  - Loss of consciousness [Fatal]
  - Multiple organ dysfunction syndrome [Fatal]
  - Acute kidney injury [Fatal]
  - Rhabdomyolysis [Fatal]
  - Anuria [Fatal]
  - Pulmonary embolism [Fatal]
  - Inflammatory marker increased [Fatal]
  - Echocardiogram abnormal [Fatal]

NARRATIVE: CASE EVENT DATE: 20220401
